FAERS Safety Report 13361319 (Version 2)
Quarter: 2017Q1

REPORT INFORMATION
  Report Type: Report from Study
  Country: CO (occurrence: CO)
  Receive Date: 20170323
  Receipt Date: 20170329
  Transmission Date: 20170429
  Serious: Yes (Death)
  Sender: FDA-Public Use
  Company Number: CO-ROCHE-1910376

PATIENT
  Sex: Female

DRUGS (1)
  1. AVASTIN [Suspect]
     Active Substance: BEVACIZUMAB
     Indication: COLON CANCER
     Route: 042
     Dates: start: 20151106, end: 20170222

REACTIONS (1)
  - Death [Fatal]
